FAERS Safety Report 24253208 (Version 1)
Quarter: 2024Q3

REPORT INFORMATION
  Report Type: Spontaneous
  Country: US (occurrence: US)
  Receive Date: 20240827
  Receipt Date: 20240827
  Transmission Date: 20241016
  Serious: Yes (Other)
  Sender: AUROBINDO
  Company Number: US-MLMSERVICE-20240613-PI098343-00129-1

PATIENT
  Age: 40 Year
  Sex: Female

DRUGS (4)
  1. DOXYCYCLINE [Suspect]
     Active Substance: DOXYCYCLINE\DOXYCYCLINE HYCLATE
     Indication: Product used for unknown indication
     Dosage: UNK
     Route: 065
  2. CEFPODOXIME [Suspect]
     Active Substance: CEFPODOXIME
     Indication: Condition aggravated
     Dosage: UNK
     Route: 065
  3. FLUTICASONE PROPIONATE [Suspect]
     Active Substance: FLUTICASONE PROPIONATE
     Indication: Asthma
     Dosage: UNK
     Route: 065
  4. CEFEPIME [Suspect]
     Active Substance: CEFEPIME HYDROCHLORIDE
     Indication: Condition aggravated
     Dosage: UNK
     Route: 065

REACTIONS (3)
  - Infection [Unknown]
  - Drug hypersensitivity [Unknown]
  - Drug ineffective [Unknown]
